FAERS Safety Report 11218716 (Version 2)
Quarter: 2015Q3

REPORT INFORMATION
  Report Type: Spontaneous
  Country: US (occurrence: US)
  Receive Date: 20150625
  Receipt Date: 20150824
  Transmission Date: 20151125
  Serious: Yes (Death, Hospitalization, Other)
  Sender: FDA-Public Use
  Company Number: US-MYLANLABS-2015M1020770

PATIENT

DRUGS (2)
  1. LOPERAMIDE [Suspect]
     Active Substance: LOPERAMIDE
     Dosage: 200 2MG CAPSULES TWO TIMES PER DAY.
     Route: 048
  2. LOPERAMIDE [Suspect]
     Active Substance: LOPERAMIDE
     Indication: PRODUCT USED FOR UNKNOWN INDICATION
     Dosage: TAKING 100 2MG CAPSULES 2 TIMES PER DAY FOR MORE THAN 18 MONTHS
     Route: 048

REACTIONS (14)
  - Death [Fatal]
  - Drug dependence [Unknown]
  - Anxiety [Unknown]
  - Lacrimation increased [Unknown]
  - Intentional overdose [Unknown]
  - Suicide attempt [Unknown]
  - Drug withdrawal syndrome [Unknown]
  - Hyperhidrosis [Unknown]
  - Drug abuse [Unknown]
  - Cardiac arrest [Unknown]
  - Tremor [Unknown]
  - Yawning [Unknown]
  - Vomiting [Unknown]
  - Diarrhoea [Unknown]
